FAERS Safety Report 6471288-0 (Version None)
Quarter: 2009Q4

REPORT INFORMATION
  Report Type: 
  Country: None (occurrence: None)
  Receive Date: 20091203
  Receipt Date: 20080611
  Transmission Date: 20100525
  Serious: Yes (Other)
  Sender: FDA-Public Use
  Company Number: FR-ELI_LILLY_AND_COMPANY-FR200801006154

PATIENT
  Age: 54 Year
  Sex: Male
  Weight: 75 kg

DRUGS (2)
  1. CIALIS [Suspect]
     Indication: ERECTILE DYSFUNCTION
     Dosage: 20 MG, AS NEEDED
     Route: 048
     Dates: start: 20050101
  2. MULTI-VITAMINS [Concomitant]
     Indication: MACULAR DEGENERATION

REACTIONS (1)
  - HEPATOCELLULAR INJURY [None]
